FAERS Safety Report 11141317 (Version 1)
Quarter: 2015Q2

REPORT INFORMATION
  Report Type: Spontaneous
  Country: US (occurrence: US)
  Receive Date: 20150527
  Receipt Date: 20150527
  Transmission Date: 20150821
  Serious: No
  Sender: FDA-Public Use
  Company Number: US-MALLINCKRODT-QSC-2014-0654

PATIENT
  Age: 71 Year
  Sex: Female

DRUGS (1)
  1. H.P. ACTHAR [Suspect]
     Active Substance: CORTICOTROPIN
     Indication: DERMATOMYOSITIS
     Dosage: 80 UNITS, BIW
     Route: 058
     Dates: start: 20140915, end: 20140925

REACTIONS (6)
  - Back pain [Unknown]
  - Pain in extremity [Unknown]
  - Hyperhidrosis [Unknown]
  - Arthralgia [Unknown]
  - Dehydration [Unknown]
  - Mood altered [Unknown]

NARRATIVE: CASE EVENT DATE: 201409
